FAERS Safety Report 7216252-9 (Version None)
Quarter: 2011Q1

REPORT INFORMATION
  Report Type: 
  Country: None (occurrence: None)
  Receive Date: 20110105
  Receipt Date: 20110105
  Transmission Date: 20110831
  Serious: Yes (Life-Threatening, Disabling)
  Sender: FDA-Public Use
  Company Number: None

PATIENT
  Sex: Male
  Weight: 83.9154 kg

DRUGS (1)
  1. PROPOXYPHENE HYDROCHLORIDE [Suspect]
     Indication: PAIN
     Dosage: 100MG 650 APAP 4 TO 6 HR.
     Dates: start: 20020101, end: 20100101

REACTIONS (2)
  - PRODUCT QUALITY ISSUE [None]
  - HEART RATE IRREGULAR [None]
